FAERS Safety Report 5808471-0 (Version None)
Quarter: 2008Q3

REPORT INFORMATION
  Report Type: 
  Country: None (occurrence: None)
  Receive Date: 20080710
  Receipt Date: 20080710
  Transmission Date: 20090109
  Serious: Yes (Hospitalization)
  Sender: FDA-Public Use
  Company Number: None

PATIENT
  Sex: Male

DRUGS (2)
  1. MORPHINE SULFATE ER 30MG TAB [Suspect]
     Indication: OVERDOSE
     Dosage: 30MG BID PO
     Route: 048
     Dates: start: 20080319, end: 20080401
  2. MSIR 15MG TAB [Suspect]
     Indication: NEOPLASM MALIGNANT
     Dosage: 15MG - 30MG Q4H PRN PO
     Route: 048
     Dates: start: 20080319, end: 20080401

REACTIONS (1)
  - OVERDOSE [None]
